FAERS Safety Report 5341096-2 (Version None)
Quarter: 2007Q2

REPORT INFORMATION
  Report Type: 
  Country: None (occurrence: None)
  Receive Date: 20070405
  Receipt Date: 20061201
  Transmission Date: 20071010
  Serious: No
  Sender: FDA-Public Use
  Company Number: US200609007397

PATIENT
  Age: 69 Year
  Sex: Female

DRUGS (12)
  1. CYMBALTA [Suspect]
     Indication: DEPRESSION
     Dosage: 120 MG, DAILY (1/D)
     Dates: start: 20060301
  2. PROZAC [Suspect]
     Indication: DEPRESSION
     Dosage: 80 MG , DAILY (1/D)
  3. AVAPRO [Concomitant]
  4. TRAZODONE HCL [Concomitant]
  5. TRIAMTERENE AND HYDROCHLOROTHIAZIDE [Concomitant]
  6. NAPROXEN [Concomitant]
  7. FAMOTIDINE [Concomitant]
  8. ANTACID                       ^WALGREENS^ (CALCIUM CARBONATE) [Concomitant]
  9. LEVOTHYROXINE SODIUM [Concomitant]
  10. POTASSIUM CHLORIDE [Concomitant]
  11. PROVIGIL [Concomitant]
  12. EFFEXOR [Concomitant]

REACTIONS (4)
  - BLOOD PRESSURE INCREASED [None]
  - C-REACTIVE PROTEIN INCREASED [None]
  - DEPRESSED MOOD [None]
  - FEELING ABNORMAL [None]
